FAERS Safety Report 5586202-X (Version None)
Quarter: 2007Q4

REPORT INFORMATION
  Report Type: 
  Country: None (occurrence: None)
  Receive Date: 20071203
  Receipt Date: 20061003
  Transmission Date: 20080405
  Serious: Yes (Hospitalization, Other)
  Sender: FDA-Public Use
  Company Number: 2006097799

PATIENT
  Sex: Male

DRUGS (8)
  1. ZYVOX [Suspect]
     Indication: OSTEOMYELITIS
     Dosage: 1200 MG (600 MG,2 IN 1 D),INTRAVENOUS
     Route: 042
     Dates: start: 20060101, end: 20060501
  2. PROZAC [Suspect]
     Dosage: 20 MG (20 MG,1 IN 1 D)
     Dates: end: 20060502
  3. METRONIDAZOLE [Concomitant]
  4. INFLAM (IBUPROFEN) [Concomitant]
  5. TOPROL-XL [Concomitant]
  6. SPIRIVA [Concomitant]
  7. PROCARDIA [Concomitant]
  8. COLACE (DOCUSATE SODIUM) [Concomitant]

REACTIONS (7)
  - CONFUSIONAL STATE [None]
  - DIARRHOEA [None]
  - DRUG INTERACTION [None]
  - GASTROINTESTINAL DISORDER [None]
  - MUSCLE TWITCHING [None]
  - NAUSEA [None]
  - SEROTONIN SYNDROME [None]
